FAERS Safety Report 7778253-1 (Version None)
Quarter: 2011Q3

REPORT INFORMATION
  Report Type: 
  Country: None (occurrence: None)
  Receive Date: 20110926
  Receipt Date: 20110915
  Transmission Date: 20111222
  Serious: Yes (Hospitalization)
  Sender: FDA-Public Use
  Company Number: PHHY2011US39710

PATIENT
  Sex: Male

DRUGS (1)
  1. TASIGNA [Suspect]
     Indication: CHRONIC MYELOID LEUKAEMIA
     Dosage: 400 MG, BID
     Route: 048
     Dates: start: 20110419

REACTIONS (11)
  - POLYURIA [None]
  - ARTHRALGIA [None]
  - NOCTURIA [None]
  - ABDOMINAL PAIN UPPER [None]
  - NIGHT SWEATS [None]
  - INSOMNIA [None]
  - MUSCULOSKELETAL PAIN [None]
  - WEIGHT DECREASED [None]
  - MYALGIA [None]
  - VISION BLURRED [None]
  - FATIGUE [None]
